FAERS Safety Report 7466814-9 (Version None)
Quarter: 2011Q2

REPORT INFORMATION
  Report Type: 
  Country: None (occurrence: None)
  Receive Date: 20110509
  Receipt Date: 20110503
  Transmission Date: 20111010
  Serious: Yes (Hospitalization)
  Sender: FDA-Public Use
  Company Number: FR-MERCK-1105FRA00016

PATIENT
  Age: 69 Year
  Sex: Female

DRUGS (8)
  1. PENTOXIFYLLINE [Suspect]
     Route: 048
     Dates: end: 20100729
  2. INSULIN DETEMIR [Concomitant]
     Route: 065
  3. INSULIN ASPART, BIPHASIC ISOPHANE [INJECTION] [Concomitant]
     Route: 065
  4. ROSUVASTATIN CALCIUM [Suspect]
     Indication: DYSLIPIDAEMIA
     Route: 048
     Dates: end: 20100729
  5. HYDROCHLOROTHIAZIDE AND LOSARTAN POTASSIUM [Concomitant]
     Route: 048
  6. METFORMIN [Concomitant]
     Route: 065
  7. METOPROLOL TARTRATE [Concomitant]
     Route: 065
  8. JANUVIA [Suspect]
     Indication: TYPE 2 DIABETES MELLITUS
     Route: 048
     Dates: start: 20100525, end: 20100723

REACTIONS (1)
  - HEPATITIS [None]
